FAERS Safety Report 10720869 (Version 2)
Quarter: 2016Q4

REPORT INFORMATION
  Report Type: Spontaneous
  Country: US (occurrence: US)
  Receive Date: 20150119
  Receipt Date: 20161117
  Transmission Date: 20170206
  Serious: No
  Sender: FDA-Public Use
  Company Number: US-PFIZER INC-2015017895

PATIENT
  Age: 73 Year
  Sex: Female

DRUGS (8)
  1. SKELAXIN [Suspect]
     Active Substance: METAXALONE
     Dosage: UNK
  2. EMYCIN [Suspect]
     Active Substance: ERYTHROMYCIN
     Dosage: UNK
  3. MERCURY [Suspect]
     Active Substance: MERCURY
     Dosage: UNK
  4. ERYTHROMYCIN. [Suspect]
     Active Substance: ERYTHROMYCIN
     Dosage: UNK
  5. LEVAQUIN [Suspect]
     Active Substance: LEVOFLOXACIN
     Dosage: UNK
  6. AZASITE [Suspect]
     Active Substance: AZITHROMYCIN MONOHYDRATE
     Dosage: UNK
  7. TETRACYCLINE HCL AVENTIS [Suspect]
     Active Substance: TETRACYCLINE HYDROCHLORIDE
     Dosage: UNK
  8. SIMVASTATIN. [Suspect]
     Active Substance: SIMVASTATIN
     Dosage: UNK

REACTIONS (1)
  - Drug hypersensitivity [Unknown]
